FAERS Safety Report 9118887 (Version 1)
Quarter: 2013Q1

REPORT INFORMATION
  Report Type: Spontaneous
  Country: US (occurrence: None)
  Receive Date: 20130221
  Receipt Date: 20130221
  Transmission Date: 20140127
  Serious: Yes (Other)
  Sender: FDA-Public Use
  Company Number: None

PATIENT
  Age: 69 Year
  Sex: Female
  Weight: 52.16 kg

DRUGS (1)
  1. BONIVA [Suspect]
     Indication: OSTEOPOROSIS
     Route: 048
     Dates: start: 20120504, end: 20130104

REACTIONS (6)
  - Pain [None]
  - Dysphagia [None]
  - Myalgia [None]
  - Arthralgia [None]
  - Movement disorder [None]
  - Insomnia [None]
